FAERS Safety Report 15483539 (Version 3)
Quarter: 2018Q4

REPORT INFORMATION
  Report Type: Spontaneous
  Country: BE (occurrence: BE)
  Receive Date: 20181010
  Receipt Date: 20181116
  Transmission Date: 20190205
  Serious: Yes (Hospitalization, Other)
  Sender: FDA-Public Use
  Company Number: BE-PFIZER INC-2018403821

PATIENT
  Age: 60 Year
  Sex: Male

DRUGS (4)
  1. MESNA. [Suspect]
     Active Substance: MESNA
     Indication: MESOTHELIOMA
     Dosage: 520 MG, UNK (260 MG/M2)
     Route: 042
     Dates: start: 201106
  2. CISPLATIN. [Suspect]
     Active Substance: CISPLATIN
     Indication: MESOTHELIOMA
     Dosage: 100 MG, UNK (50 MG/M2)
     Route: 033
     Dates: start: 201106
  3. DOXORUBICIN HCL [Suspect]
     Active Substance: DOXORUBICIN HYDROCHLORIDE
     Indication: MESOTHELIOMA
     Dosage: 30 MG, UNK  (15 MG/M2)
     Route: 033
     Dates: start: 201106
  4. IFOSFAMIDE. [Suspect]
     Active Substance: IFOSFAMIDE
     Indication: MESOTHELIOMA
     Dosage: 2600 MG, UNK (1300 MG/M2)
     Route: 042
     Dates: start: 201106

REACTIONS (1)
  - Encapsulating peritoneal sclerosis [Recovered/Resolved]

NARRATIVE: CASE EVENT DATE: 201109
